FAERS Safety Report 7701765-3 (Version None)
Quarter: 2011Q3

REPORT INFORMATION
  Report Type: 
  Country: None (occurrence: None)
  Receive Date: 20110822
  Receipt Date: 20110817
  Transmission Date: 20111222
  Serious: Yes (Disabling)
  Sender: FDA-Public Use
  Company Number: CA-BAYER-2011-058912

PATIENT
  Age: 29 Year
  Sex: Male
  Weight: 55.3 kg

DRUGS (1)
  1. CIPROFLOXACIN [Suspect]
     Indication: INFECTION
     Dosage: 500 MG, BID

REACTIONS (11)
  - ANXIETY [None]
  - CONFUSIONAL STATE [None]
  - MUSCULAR WEAKNESS [None]
  - ARRHYTHMIA [None]
  - NERVOUS SYSTEM DISORDER [None]
  - PARAESTHESIA [None]
  - VITREOUS FLOATERS [None]
  - HEART RATE INCREASED [None]
  - ASTHENIA [None]
  - WEIGHT DECREASED [None]
  - MUSCLE ATROPHY [None]
